FAERS Safety Report 6784413-9 (Version None)
Quarter: 2010Q2

REPORT INFORMATION
  Report Type: 
  Country: None (occurrence: None)
  Receive Date: 20100622
  Receipt Date: 20100611
  Transmission Date: 20101027
  Serious: Yes (Other)
  Sender: FDA-Public Use
  Company Number: US-JNJFOC-20100600563

PATIENT
  Age: 4 Month
  Sex: Female
  Weight: 4.99 kg

DRUGS (2)
  1. CONCENTRATED TYLENOL INFANT DROPS [Suspect]
     Indication: NASOPHARYNGITIS
     Dosage: 2 OR 3 TIMES A DAY FOR 7 DAYS
     Route: 048
  2. CONCENTRATED TYLENOL INFANT DROPS [Suspect]
     Indication: RHINORRHOEA
     Dosage: 2 OR 3 TIMES A DAY FOR 7 DAYS
     Route: 048

REACTIONS (5)
  - BLISTER [None]
  - BLOOD BLISTER [None]
  - ORAL INFECTION [None]
  - PRODUCT QUALITY ISSUE [None]
  - TONGUE BLISTERING [None]
